FAERS Safety Report 10364856 (Version 2)
Quarter: 2014Q3

REPORT INFORMATION
  Report Type: Spontaneous
  Country: IT (occurrence: IT)
  Receive Date: 20140806
  Receipt Date: 20140806
  Transmission Date: 20150326
  Serious: Yes (Hospitalization)
  Sender: FDA-Public Use
  Company Number: IT-MYLAN-2014S1011557

PATIENT

DRUGS (1)
  1. EPINEPHRINE. [Suspect]
     Active Substance: EPINEPHRINE
     Indication: PRODUCT USED FOR UNKNOWN INDICATION
     Dosage: 330 ?G,TOTAL
     Route: 058
     Dates: start: 20140413, end: 20140413

REACTIONS (3)
  - Pain [Unknown]
  - Medication error [Unknown]
  - Expired product administered [Unknown]

NARRATIVE: CASE EVENT DATE: 20140413
